FAERS Safety Report 7509416-8 (Version None)
Quarter: 2011Q2

REPORT INFORMATION
  Report Type: 
  Country: None (occurrence: None)
  Receive Date: 20110527
  Receipt Date: 20110428
  Transmission Date: 20111010
  Serious: No
  Sender: FDA-Public Use
  Company Number: US-BAYER-2011-037951

PATIENT
  Age: 52 Year
  Sex: Female
  Weight: 86 kg

DRUGS (3)
  1. SYMBICORT [Concomitant]
  2. ALEVE (CAPLET) [Suspect]
     Indication: ANALGESIC THERAPY
     Dosage: 2 DF, QD
     Route: 048
     Dates: start: 20110428, end: 20110428
  3. DIOVAN [Concomitant]

REACTIONS (1)
  - NO ADVERSE EVENT [None]
